FAERS Safety Report 18953293 (Version 3)
Quarter: 2021Q1

REPORT INFORMATION
  Report Type: Report from Study
  Country: IN (occurrence: IN)
  Receive Date: 20210301
  Receipt Date: 20210304
  Transmission Date: 20210420
  Serious: Yes (Death, Life-Threatening, Hospitalization)
  Sender: FDA-Public Use
  Company Number: NVSC2021IN044403

PATIENT
  Age: 60 Year
  Sex: Female

DRUGS (1)
  1. PIVIKTO [Suspect]
     Active Substance: ALPELISIB
     Indication: BREAST CANCER
     Dosage: 250 MG, QD
     Route: 048
     Dates: start: 20210205, end: 20210214

REACTIONS (5)
  - Ketoacidosis [Fatal]
  - Dizziness [Not Recovered/Not Resolved]
  - Hyperglycaemia [Fatal]
  - Septic shock [Fatal]
  - Vertigo [Not Recovered/Not Resolved]

NARRATIVE: CASE EVENT DATE: 20210217
